FAERS Safety Report 5214964-X (Version None)
Quarter: 2007Q1

REPORT INFORMATION
  Report Type: 
  Country: None (occurrence: None)
  Receive Date: 20070119
  Receipt Date: 20070119
  Transmission Date: 20070707
  Serious: Yes (Death)
  Sender: FDA-Public Use
  Company Number: None

PATIENT
  Sex: Female
  Weight: 63.5036 kg

DRUGS (2)
  1. CHANTIX [Suspect]
     Indication: SMOKING CESSATION THERAPY
     Dosage: .5 MG DAILY X 3 DAYS QD, THEN BID PO
     Route: 048
     Dates: start: 20061107, end: 20061114
  2. CHANTIX [Suspect]
     Dosage: 1 MG BID FOR 11 WEEKS PO
     Route: 048
     Dates: start: 20061114, end: 20061230

REACTIONS (1)
  - FALL [None]
